FAERS Safety Report 6633909-9 (Version None)
Quarter: 2010Q1

REPORT INFORMATION
  Report Type: 
  Country: None (occurrence: None)
  Receive Date: 20100309
  Receipt Date: 20100225
  Transmission Date: 20100710
  Serious: Yes (Hospitalization)
  Sender: FDA-Public Use
  Company Number: 2007-00446

PATIENT
  Age: 65 Year
  Sex: Male
  Weight: 71 kg

DRUGS (16)
  1. VELCADE [Suspect]
     Indication: T-CELL LYMPHOMA
     Dosage: 2.54 MG, INTRAVENOUS
     Route: 042
     Dates: start: 20061025, end: 20070210
  2. DOXORUBICIN HCL [Suspect]
     Indication: T-CELL LYMPHOMA
     Dosage: 127.00 MG, INTRAVENOUS
     Route: 042
     Dates: start: 20061025, end: 20061219
  3. CYCLOPHOSPHAMIDE [Suspect]
     Indication: T-CELL LYMPHOMA
     Dosage: 2030.00 MG, INTRAVENOUS
     Route: 042
     Dates: start: 20061025, end: 20061219
  4. PREDNISONE [Suspect]
     Indication: T-CELL LYMPHOMA
     Dosage: 106.80 MG, ORAL
     Route: 048
     Dates: start: 20061025, end: 20061222
  5. METHOTREXATE [Suspect]
     Indication: T-CELL LYMPHOMA
     Dosage: 15.00 MG INTRATHECAL; 5100.00 MG,  INTRAVENOUS
     Route: 037
     Dates: start: 20061025, end: 20061219
  6. METHOTREXATE [Suspect]
     Indication: T-CELL LYMPHOMA
     Dosage: 15.00 MG INTRATHECAL; 5100.00 MG,  INTRAVENOUS
     Route: 037
     Dates: start: 20070127, end: 20070210
  7. BLEOMYCIN SULFATE [Suspect]
     Indication: T-CELL LYMPHOMA
     Dosage: 10.00 MG, INTRAVENOUS
     Route: 042
     Dates: start: 20061025, end: 20061222
  8. GRANOCYTE 13-34 (LENOGRASTIM) INJECTION [Suspect]
     Indication: T-CELL LYMPHOMA
     Dosage: 263.00  MG, SUBCUTANEOUS
     Route: 058
     Dates: start: 20061030, end: 20070101
  9. ELDISINE [Suspect]
     Indication: T-CELL LYMPHOMA
     Dosage: 3.38 MG, INTRAVENOUS
     Route: 042
     Dates: start: 20061025, end: 20061223
  10. BACTRIM [Concomitant]
  11. DOXORUBICIN HCL [Concomitant]
  12. VALACYCLOVIR HCL [Concomitant]
  13. LEDERFOLIN (CALCIUM FOLINATE) [Concomitant]
  14. TRIMETAZIDINE HYDROCHLORIDE (TRIMETAZIDINE HYDROCHLORIDE) [Concomitant]
  15. ATORVASTATIN CALCIUM [Concomitant]
  16. PANTOPRAZOLE SODIUM [Concomitant]

REACTIONS (15)
  - BRONCHITIS [None]
  - CARBON MONOXIDE DIFFUSING CAPACITY DECREASED [None]
  - CLOSTRIDIUM DIFFICILE COLITIS [None]
  - CYTOMEGALOVIRUS VIRAEMIA [None]
  - DEPRESSION [None]
  - HAEMORRHAGE [None]
  - HEADACHE [None]
  - HYPOCAPNIA [None]
  - LEGIONELLA TEST POSITIVE [None]
  - MEMORY IMPAIRMENT [None]
  - PLEURAL FIBROSIS [None]
  - PNEUMONITIS [None]
  - STREPTOCOCCUS TEST POSITIVE [None]
  - TONGUE DISCOLOURATION [None]
  - UPPER AIRWAY OBSTRUCTION [None]
